FAERS Safety Report 7317180-0 (Version None)
Quarter: 2011Q1

REPORT INFORMATION
  Report Type: 
  Country: None (occurrence: None)
  Receive Date: 20110226
  Receipt Date: 20101004
  Transmission Date: 20110831
  Serious: No
  Sender: FDA-Public Use
  Company Number: US-ALLERGAN-1012769US

PATIENT
  Age: 51 Year
  Sex: Female

DRUGS (2)
  1. BACLOFEN [Concomitant]
     Dosage: UNK
  2. BOTOXA? [Suspect]
     Indication: TORTICOLLIS
     Dosage: UNK
     Route: 030
     Dates: start: 20100924, end: 20100924

REACTIONS (11)
  - NECK PAIN [None]
  - SENSATION OF HEAVINESS [None]
  - INFLUENZA LIKE ILLNESS [None]
  - HEADACHE [None]
  - DYSPHAGIA [None]
  - DYSKINESIA [None]
  - SWOLLEN TONGUE [None]
  - SPEECH DISORDER [None]
  - FATIGUE [None]
  - ASTHENIA [None]
  - NAUSEA [None]
